FAERS Safety Report 13621027 (Version 2)
Quarter: 2017Q2

REPORT INFORMATION
  Report Type: Spontaneous
  Country: RU (occurrence: RU)
  Receive Date: 20170607
  Receipt Date: 20170630
  Transmission Date: 20170830
  Serious: Yes (Life-Threatening, Disabling, Other)
  Sender: FDA-Public Use
  Company Number: RU-B.I. PHARMACEUTICALS,INC./RIDGEFIELD-2017-BI-030883

PATIENT
  Age: 65 Year
  Sex: Male
  Weight: 88 kg

DRUGS (4)
  1. WARFARIN [Concomitant]
     Active Substance: WARFARIN
     Indication: DRUG THERAPY
     Route: 048
     Dates: start: 201706
  2. CONCOR/BISOPROLOL [Concomitant]
     Indication: ESSENTIAL HYPERTENSION
     Route: 048
     Dates: start: 2015
  3. PRADAXA [Suspect]
     Active Substance: DABIGATRAN ETEXILATE MESYLATE
     Indication: ATRIAL FIBRILLATION
     Route: 065
     Dates: start: 2015, end: 20170524
  4. CPRDARONE/AMIODARONE [Concomitant]
     Indication: ARRHYTHMIA PROPHYLAXIS
     Route: 048
     Dates: start: 2015

REACTIONS (4)
  - Endocarditis [Recovered/Resolved]
  - Cardiac failure [Recovered/Resolved]
  - Aneurysm [Unknown]
  - Renal failure [Recovered/Resolved]

NARRATIVE: CASE EVENT DATE: 201705
